FAERS Safety Report 18197748 (Version 1)
Quarter: 2020Q3

REPORT INFORMATION
  Report Type: Spontaneous
  Country: US (occurrence: US)
  Receive Date: 20200826
  Receipt Date: 20200826
  Transmission Date: 20201103
  Serious: No
  Sender: FDA-Public Use
  Company Number: US-PFIZER INC-2020330220

PATIENT
  Age: 69 Year
  Sex: Female

DRUGS (1)
  1. IBRANCE [Suspect]
     Active Substance: PALBOCICLIB
     Indication: BREAST CANCER FEMALE
     Dosage: 100 MG, CYCLIC (100 MG QD X 21 DAYS Q 28 DAYS)
     Dates: start: 20191007

REACTIONS (7)
  - Alopecia [Unknown]
  - Headache [Unknown]
  - Fatigue [Unknown]
  - Arthralgia [Unknown]
  - Dizziness [Unknown]
  - Injection site swelling [Unknown]
  - Constipation [Unknown]
